FAERS Safety Report 6016227-1 (Version None)
Quarter: 2008Q4

REPORT INFORMATION
  Report Type: 
  Country: None (occurrence: None)
  Receive Date: 20081222
  Receipt Date: 20081210
  Transmission Date: 20090506
  Serious: Yes (Other)
  Sender: FDA-Public Use
  Company Number: PH-CELGENEUS-THAPH200700315

PATIENT
  Sex: Male

DRUGS (11)
  1. THALIDOMIDE [Suspect]
     Indication: MULTIPLE MYELOMA
     Route: 048
     Dates: start: 20061121, end: 20070411
  2. ASPIRIN [Concomitant]
     Indication: PROPHYLAXIS
  3. METOPROLOL TARTRATE [Concomitant]
     Indication: HYPERTENSION
  4. IMIDAPRIL [Concomitant]
     Indication: HYPERTENSION
  5. ISOSORBIDE MONONITRATE [Concomitant]
     Indication: HYPERTENSION
  6. MULTI-VITAMINS [Concomitant]
  7. LACTULOSE [Concomitant]
     Indication: CONSTIPATION
     Dates: start: 20061221
  8. DULCOLAX [Concomitant]
     Indication: CONSTIPATION
     Dates: start: 20070208, end: 20070210
  9. MELOXICAM [Concomitant]
     Dates: start: 20070218, end: 20070221
  10. EPARISON [Concomitant]
     Dates: start: 20070218, end: 20070221
  11. ASPILET [Concomitant]
     Dates: start: 20070216

REACTIONS (2)
  - HAEMATOCRIT INCREASED [None]
  - HAEMOGLOBIN ABNORMAL [None]
